FAERS Safety Report 6187570-0 (Version None)
Quarter: 2009Q2

REPORT INFORMATION
  Report Type: 
  Country: None (occurrence: None)
  Receive Date: 20090508
  Receipt Date: 20090428
  Transmission Date: 20091009
  Serious: No
  Sender: FDA-Public Use
  Company Number: 2009-195722-NL

PATIENT
  Age: 49 Year
  Sex: Male

DRUGS (1)
  1. DANAPAROID SODIUM [Suspect]

REACTIONS (2)
  - HEPARIN-INDUCED THROMBOCYTOPENIA [None]
  - UNEVALUABLE EVENT [None]
